FAERS Safety Report 5250125-6 (Version None)
Quarter: 2007Q1

REPORT INFORMATION
  Report Type: 
  Country: None (occurrence: None)
  Receive Date: 20070228
  Receipt Date: 20061208
  Transmission Date: 20070707
  Serious: No
  Sender: FDA-Public Use
  Company Number: US-GLAXOSMITHKLINE-A0593051A

PATIENT
  Age: 54 Year
  Sex: Female

DRUGS (5)
  1. LAMICTAL [Suspect]
     Indication: BIPOLAR DISORDER
     Dosage: 125MG PER DAY
     Route: 048
     Dates: start: 20050401
  2. PROZAC [Concomitant]
  3. LITHIUM CARBONATE [Concomitant]
  4. ADDERALL 10 [Concomitant]
  5. CODEINE [Concomitant]

REACTIONS (14)
  - ACNE [None]
  - DEPRESSIVE SYMPTOM [None]
  - DRY MOUTH [None]
  - DYSPHAGIA [None]
  - HYPERPHAGIA [None]
  - INSOMNIA [None]
  - LIP DRY [None]
  - LYMPHADENOPATHY [None]
  - MOUTH ULCERATION [None]
  - ORAL PAIN [None]
  - PAIN IN JAW [None]
  - PHARYNGOLARYNGEAL PAIN [None]
  - SPEECH DISORDER [None]
  - TOOTHACHE [None]
